FAERS Safety Report 19475416 (Version 2)
Quarter: 2021Q3

REPORT INFORMATION
  Report Type: Spontaneous
  Country: US (occurrence: US)
  Receive Date: 20210629
  Receipt Date: 20210806
  Transmission Date: 20211014
  Serious: No
  Sender: FDA-Public Use
  Company Number: US-ASTRAZENECA-2021A532493

PATIENT
  Age: 61 Year
  Sex: Male
  Weight: 77.1 kg

DRUGS (1)
  1. BYDUREON BCISE [Suspect]
     Active Substance: EXENATIDE
     Indication: TYPE 2 DIABETES MELLITUS
     Route: 058

REACTIONS (7)
  - Rotator cuff syndrome [Recovering/Resolving]
  - Device malfunction [Unknown]
  - Procedural pain [Recovering/Resolving]
  - Fall [Unknown]
  - Hypoacusis [Not Recovered/Not Resolved]
  - Needle issue [Unknown]
  - Product dose omission issue [Unknown]

NARRATIVE: CASE EVENT DATE: 2021
